FAERS Safety Report 7998707 (Version 12)
Quarter: 2013Q1

REPORT INFORMATION
  Report Type: Spontaneous
  Country: US (occurrence: US)
  Receive Date: 20110620
  Receipt Date: 20130207
  Transmission Date: 20140127
  Serious: Yes (Hospitalization, Disabling, Other)
  Sender: FDA-Public Use
  Company Number: US-009507513-1106USA02212

PATIENT
  Sex: Female
  Weight: 71.21 kg

DRUGS (3)
  1. FOSAMAX [Suspect]
     Indication: OSTEOPOROSIS
     Dosage: 70 MG, QW
     Route: 048
     Dates: start: 199612
  2. BONIVA [Suspect]
     Indication: OSTEOPOROSIS
     Dates: start: 201010, end: 201102
  3. ALENDRONATE SODIUM [Suspect]
     Indication: OSTEOPENIA
     Route: 048

REACTIONS (124)
  - Tibia fracture [Unknown]
  - Osteoporosis [Not Recovered/Not Resolved]
  - Stress fracture [Not Recovered/Not Resolved]
  - Fracture [Not Recovered/Not Resolved]
  - Low turnover osteopathy [Not Recovered/Not Resolved]
  - Spinal fracture [Not Recovered/Not Resolved]
  - Tooth disorder [Unknown]
  - Fall [Unknown]
  - Spinal column injury [Unknown]
  - Spinal fracture [Unknown]
  - Gastrooesophageal reflux disease [Not Recovered/Not Resolved]
  - Vitamin D deficiency [Unknown]
  - Calcium deficiency [Unknown]
  - Barrett^s oesophagus [Unknown]
  - Adverse event [Unknown]
  - Foot fracture [Unknown]
  - Ovarian cyst [Unknown]
  - Meniscus injury [Unknown]
  - Incontinence [Unknown]
  - Uterine leiomyoma [Unknown]
  - Oestrogen deficiency [Unknown]
  - Thoracic vertebral fracture [Not Recovered/Not Resolved]
  - Back pain [Not Recovered/Not Resolved]
  - Intervertebral disc disorder [Unknown]
  - Back pain [Unknown]
  - Spinal disorder [Unknown]
  - Carpal tunnel syndrome [Unknown]
  - Diplopia [Unknown]
  - Headache [Recovered/Resolved]
  - Pruritus [Unknown]
  - Dizziness [Unknown]
  - Muscular weakness [Not Recovered/Not Resolved]
  - Dyspnoea [Unknown]
  - Gait disturbance [Not Recovered/Not Resolved]
  - Local swelling [Unknown]
  - Pollakiuria [Unknown]
  - Dysuria [Not Recovered/Not Resolved]
  - Abdominal pain [Unknown]
  - Dysphagia [Unknown]
  - Fall [Unknown]
  - Immunodeficiency [Unknown]
  - Fractured coccyx [Not Recovered/Not Resolved]
  - Sciatica [Unknown]
  - Hemiparesis [Unknown]
  - Foot deformity [Unknown]
  - Constipation [Unknown]
  - Haemorrhoids [Unknown]
  - Large intestine polyp [Unknown]
  - Acquired oesophageal web [Unknown]
  - Gastritis [Unknown]
  - Muscular weakness [Unknown]
  - Urinary incontinence [Recovering/Resolving]
  - Perineurial cyst [Unknown]
  - Rib fracture [Unknown]
  - Injury [Unknown]
  - Endometriosis [Unknown]
  - Vision blurred [Not Recovered/Not Resolved]
  - Tenderness [Unknown]
  - Dystonia [Unknown]
  - Urinary tract infection [Not Recovered/Not Resolved]
  - Mental disorder [Unknown]
  - Arthralgia [Recovered/Resolved]
  - Bursitis [Unknown]
  - Piriformis syndrome [Unknown]
  - Breast prosthesis implantation [Unknown]
  - Liposuction [Unknown]
  - Abdominoplasty [Unknown]
  - Depressive symptom [Not Recovered/Not Resolved]
  - Arthropathy [Unknown]
  - Radiculopathy [Unknown]
  - Intervertebral disc protrusion [Unknown]
  - Intervertebral disc protrusion [Unknown]
  - Urinary incontinence [Unknown]
  - Foot fracture [Unknown]
  - Complex regional pain syndrome [Not Recovered/Not Resolved]
  - Oesophageal spasm [Unknown]
  - Neuropathy peripheral [Unknown]
  - Herpes virus infection [Unknown]
  - Adverse drug reaction [Unknown]
  - Loss of consciousness [Unknown]
  - Intervertebral disc degeneration [Unknown]
  - Intervertebral disc protrusion [Unknown]
  - Fibromyalgia [Unknown]
  - Complex regional pain syndrome [Unknown]
  - Depression [Unknown]
  - Atelectasis [Unknown]
  - Dehydration [Unknown]
  - Vomiting [Unknown]
  - Chest pain [Unknown]
  - Cough [Unknown]
  - Asthma [Not Recovered/Not Resolved]
  - Hiatus hernia [Unknown]
  - Oesophageal ulcer [Unknown]
  - Gastritis [Unknown]
  - Bronchitis [Unknown]
  - Dyspnoea [Unknown]
  - Drug hypersensitivity [Unknown]
  - Cardiac arrest [Unknown]
  - Mitral valve prolapse [Unknown]
  - Tricuspid valve prolapse [Unknown]
  - Tricuspid valve incompetence [Unknown]
  - Migraine [Unknown]
  - Cervicitis [Unknown]
  - Pelvic adhesions [Unknown]
  - Neuralgia [Unknown]
  - Rash [Unknown]
  - Pain in extremity [Unknown]
  - Micturition urgency [Unknown]
  - Urethral cyst [Unknown]
  - Photopsia [Unknown]
  - Tinnitus [Unknown]
  - Tachycardia [Unknown]
  - Hypotension [Unknown]
  - Cardiovascular insufficiency [Unknown]
  - Increased tendency to bruise [Unknown]
  - Breast discharge [Unknown]
  - Panic attack [Unknown]
  - Osteoarthritis [Unknown]
  - Impaired healing [Unknown]
  - Morton^s neuroma [Unknown]
  - Compression fracture [Not Recovered/Not Resolved]
  - Dyslipidaemia [Unknown]
  - Hot flush [Unknown]
  - Synovial cyst [Unknown]
